FAERS Safety Report 6997320-3 (Version None)
Quarter: 2010Q3

REPORT INFORMATION
  Report Type: 
  Country: None (occurrence: None)
  Receive Date: 20100918
  Receipt Date: 20091002
  Transmission Date: 20110219
  Serious: No
  Sender: FDA-Public Use
  Company Number: US-WYE-H11363209

PATIENT
  Sex: Female
  Weight: 63.56 kg

DRUGS (6)
  1. PRISTIQ [Suspect]
     Indication: DEPRESSION
     Route: 048
     Dates: start: 20090928
  2. LISINOPRIL [Concomitant]
  3. AMIODARONE HYDROCHLORIDE [Concomitant]
  4. METOPROLOL [Concomitant]
  5. LORAZEPAM [Concomitant]
  6. IMIPRAMINE HYDROCHLORIDE [Concomitant]

REACTIONS (2)
  - MIDDLE INSOMNIA [None]
  - URINE FLOW DECREASED [None]
